FAERS Safety Report 4424800-7 (Version None)
Quarter: 2004Q3

REPORT INFORMATION
  Report Type: 
  Country: None (occurrence: None)
  Receive Date: 20040809
  Receipt Date: 20040728
  Transmission Date: 20050211
  Serious: Yes (Death, Hospitalization)
  Sender: FDA-Public Use
  Company Number: NL-JNJFOC-20040104820

PATIENT
  Age: 76 Year
  Sex: Female

DRUGS (8)
  1. REMICADE [Suspect]
     Indication: RHEUMATOID ARTHRITIS
     Dosage: 10 MG/KG, INTRAVENOUS
     Route: 042
     Dates: start: 20030618
  2. PREDNISOLONE [Suspect]
     Indication: RHEUMATOID ARTHRITIS
     Dosage: 30 MG
  3. DICLOFENAC (DICLOFENAC) [Concomitant]
  4. NORVASC [Concomitant]
  5. OMEPRAZOLE [Concomitant]
  6. ACTENOL (ALL OTHER NON-THERAPEUTIC PRODUCTS) [Concomitant]
  7. HYDROCORTISONE (HYDROCORTISONE) CREAM [Concomitant]
  8. CACIT (CACIT) [Concomitant]

REACTIONS (7)
  - ARTHRITIS BACTERIAL [None]
  - CARDIAC ARREST [None]
  - MULTI-ORGAN FAILURE [None]
  - RESPIRATORY FAILURE [None]
  - SEPSIS [None]
  - STAPHYLOCOCCAL INFECTION [None]
  - THERAPY NON-RESPONDER [None]
